FAERS Safety Report 13860140 (Version 1)
Quarter: 2017Q3

REPORT INFORMATION
  Report Type: Spontaneous
  Country: US (occurrence: US)
  Receive Date: 20170811
  Receipt Date: 20170811
  Transmission Date: 20171127
  Serious: No
  Sender: FDA-Public Use
  Company Number: US-ELI_LILLY_AND_COMPANY-US201708003088

PATIENT
  Sex: Male

DRUGS (7)
  1. ADULT MULTIVITAMIN [Concomitant]
     Indication: PRODUCT USED FOR UNKNOWN INDICATION
  2. JANUMET [Concomitant]
     Active Substance: METFORMIN HYDROCHLORIDE\SITAGLIPTIN PHOSPHATE
     Indication: DIABETES MELLITUS
     Dosage: UNK
  3. GLIMEPIRIDE. [Concomitant]
     Active Substance: GLIMEPIRIDE
     Indication: DIABETES MELLITUS
  4. BABY ASPIRIN [Concomitant]
     Active Substance: ASPIRIN
     Indication: CARDIAC DISORDER
  5. TRULICITY [Suspect]
     Active Substance: DULAGLUTIDE
     Indication: DIABETES MELLITUS
     Dosage: 1.5 MG, WEEKLY (1/W)
     Route: 065
     Dates: start: 201707
  6. ZETIA [Concomitant]
     Active Substance: EZETIMIBE
     Indication: BLOOD CHOLESTEROL INCREASED
  7. NIACIN. [Concomitant]
     Active Substance: NIACIN
     Indication: CARDIAC DISORDER

REACTIONS (6)
  - Weight decreased [Not Recovered/Not Resolved]
  - Throat tightness [Not Recovered/Not Resolved]
  - Nausea [Not Recovered/Not Resolved]
  - Decreased appetite [Not Recovered/Not Resolved]
  - Blood cholesterol increased [Not Recovered/Not Resolved]
  - Dysgeusia [Recovering/Resolving]
